FAERS Safety Report 7542638-9 (Version None)
Quarter: 2011Q2

REPORT INFORMATION
  Report Type: 
  Country: None (occurrence: None)
  Receive Date: 20110613
  Receipt Date: 20110527
  Transmission Date: 20111010
  Serious: No
  Sender: FDA-Public Use
  Company Number: US-B.I. PHARMACEUTICALS,INC./RIDGEFIELD-2011-BP-11448BP

PATIENT
  Sex: Male

DRUGS (10)
  1. ATENOLOL [Concomitant]
     Indication: TACHYCARDIA
     Route: 048
  2. COSOPT [Concomitant]
     Indication: GLAUCOMA
  3. TRAVATAN [Concomitant]
     Indication: GLAUCOMA
  4. DIAMOX [Concomitant]
     Indication: CATARACT OPERATION
  5. PREDNISOLONE [Concomitant]
     Indication: CATARACT OPERATION
  6. PRADAXA [Suspect]
     Indication: ATRIAL FIBRILLATION
     Dosage: 300 MG
     Route: 048
     Dates: start: 20110413
  7. SIMVASTATIN [Concomitant]
     Indication: BLOOD CHOLESTEROL INCREASED
     Route: 048
  8. M.V.I. [Concomitant]
     Route: 048
  9. LOVAZA [Concomitant]
     Route: 048
  10. DROMODAY [Concomitant]
     Indication: CATARACT OPERATION

REACTIONS (2)
  - HEADACHE [None]
  - DYSPEPSIA [None]
